FAERS Safety Report 5786805-3 (Version None)
Quarter: 2008Q2

REPORT INFORMATION
  Report Type: 
  Country: None (occurrence: None)
  Receive Date: 20080620
  Receipt Date: 20080616
  Transmission Date: 20081010
  Serious: Yes (Hospitalization, Other)
  Sender: FDA-Public Use
  Company Number: 2008015634

PATIENT
  Age: 30 Year
  Sex: Male
  Weight: 87.0906 kg

DRUGS (1)
  1. NEOSPORIN [Suspect]
     Indication: PROPHYLAXIS
     Dosage: DIME SIZE ONCE (1 IN 1 D), TOPICAL
     Route: 061
     Dates: start: 20080612, end: 20080612

REACTIONS (1)
  - ANAPHYLACTIC SHOCK [None]
